FAERS Safety Report 17119512 (Version 2)
Quarter: 2019Q4

REPORT INFORMATION
  Report Type: Spontaneous
  Country: IT (occurrence: IT)
  Receive Date: 20191206
  Receipt Date: 20191216
  Transmission Date: 20200122
  Serious: Yes (Hospitalization)
  Sender: FDA-Public Use
  Company Number: IT-AUROBINDO-AUR-APL-2019-103278

PATIENT
  Age: 81 Year
  Sex: Female

DRUGS (5)
  1. ATORVASTATIN [Suspect]
     Active Substance: ATORVASTATIN
     Indication: TRANSIENT ISCHAEMIC ATTACK
     Dosage: 10 MILLIGRAM, ONCE A DAY
     Route: 065
  2. QUINAPRIL/HYDROCHLOROTHIAZIDE FILM-COATED TABLET [Suspect]
     Active Substance: HYDROCHLOROTHIAZIDE\QUINAPRIL HYDROCHLORIDE
     Indication: HYPERTENSION
     Dosage: UNK
     Route: 065
  3. METFORMIN [Suspect]
     Active Substance: METFORMIN HYDROCHLORIDE
     Indication: DIABETES MELLITUS
     Dosage: 500 MILLIGRAM, 3 TIMES A DAY (1500 MILLIGRAM, ONCE A DAY)
     Route: 065
  4. ASPIRIN. [Suspect]
     Active Substance: ASPIRIN
     Indication: TRANSIENT ISCHAEMIC ATTACK
     Dosage: 100 MILLIGRAM, ONCE A DAY,QD
     Route: 065
  5. DIPYRIDAMOLE. [Suspect]
     Active Substance: DIPYRIDAMOLE
     Indication: CHEST PAIN
     Dosage: 0.84 MILLIGRAM/KILOGRAM,(0.84 MG/KG IN 6 MINUTES)
     Route: 042

REACTIONS (4)
  - Headache [Unknown]
  - Stress cardiomyopathy [Unknown]
  - Chest pain [Unknown]
  - Hypertension [Unknown]
